FAERS Safety Report 10892745 (Version 1)
Quarter: 2015Q1

REPORT INFORMATION
  Report Type: Spontaneous
  Country: US (occurrence: US)
  Receive Date: 20150306
  Receipt Date: 20150306
  Transmission Date: 20150721
  Serious: Yes (Other)
  Sender: FDA-Public Use
  Company Number: PHHY2015US026906

PATIENT
  Age: 59 Year
  Sex: Male

DRUGS (1)
  1. ACETYLSALICYLIC ACID [Suspect]
     Active Substance: ASPIRIN
     Indication: RHINITIS ALLERGIC
     Route: 065

REACTIONS (4)
  - Haemorrhage [Unknown]
  - Neoplasm skin [Unknown]
  - Sweat gland tumour [Unknown]
  - Eyelid disorder [Unknown]
